FAERS Safety Report 9253324 (Version 2)
Quarter: 2013Q3

REPORT INFORMATION
  Report Type: Spontaneous
  Country: JP (occurrence: JP)
  Receive Date: 20130424
  Receipt Date: 20130702
  Transmission Date: 20140515
  Serious: Yes (Hospitalization)
  Sender: FDA-Public Use
  Company Number: JP-009507513-1304JPN013541

PATIENT
  Age: 72 Year
  Sex: Male
  Weight: 45 kg

DRUGS (12)
  1. PEGINTRON [Suspect]
     Indication: CHRONIC HEPATITIS C
     Dosage: 80 MICROGRAM, QW
     Route: 058
     Dates: start: 20130110, end: 20130404
  2. PEGINTRON [Suspect]
     Dosage: 80 MICROGRAM, QW
     Route: 058
     Dates: start: 20130418
  3. REBETOL [Suspect]
     Indication: CHRONIC HEPATITIS C
     Dosage: 600 MG, QD
     Route: 048
     Dates: start: 20130110, end: 20130123
  4. REBETOL [Suspect]
     Dosage: 400 MG, QD
     Route: 048
     Dates: start: 20130124, end: 20130403
  5. REBETOL [Suspect]
     Dosage: 600 MG, QD
     Route: 048
     Dates: start: 20130404, end: 20130410
  6. REBETOL [Suspect]
     Dosage: 400 MG, QD
     Route: 048
     Dates: start: 20130411, end: 20130417
  7. REBETOL [Suspect]
     Dosage: 600 MG, QD
     Route: 048
     Dates: start: 20130418
  8. TELAVIC [Suspect]
     Indication: CHRONIC HEPATITIS C
     Dosage: 2250 MG, QD
     Route: 048
     Dates: start: 20130110, end: 20130220
  9. TELAVIC [Suspect]
     Dosage: 1500 MG, QD
     Route: 048
     Dates: start: 20130221, end: 20130408
  10. AMOBAN [Concomitant]
     Indication: PROPHYLAXIS
     Dosage: 7.5 MG, QD, AS NEEDED
     Route: 048
     Dates: end: 20130125
  11. LOXONIN [Concomitant]
     Indication: PROPHYLAXIS
     Dosage: 60 MG, QD AS NEEDED
     Route: 048
     Dates: end: 20130321
  12. EPADEL S [Concomitant]
     Dosage: 2 DF, QD, FORMULATION: POR
     Route: 048
     Dates: start: 20130110

REACTIONS (1)
  - Pancreatitis [Recovered/Resolved]
